FAERS Safety Report 8778058 (Version 1)
Quarter: 2012Q4

REPORT INFORMATION
  Report Type: 
  Country: US (occurrence: US)
  Receive Date: 20120912
  Receipt Date: 20120912
  Transmission Date: 20130627
  Serious: Yes (Hospitalization, Other)
  Sender: FDA-Public Use
  Company Number: US-ELI_LILLY_AND_COMPANY-US201209001276

PATIENT
  Age: 79 Year
  Sex: Female

DRUGS (2)
  1. HUMALOG 25% LISPRO, 75% NPL [Suspect]
     Indication: TYPE 1 DIABETES MELLITUS
     Dosage: UNK, unknown
  2. HUMALOG 25% LISPRO, 75% NPL [Suspect]
     Indication: TYPE 1 DIABETES MELLITUS
     Dosage: UNK UNK, unknown

REACTIONS (3)
  - Cerebrovascular accident [Unknown]
  - Blood glucose increased [Recovered/Resolved]
  - Blood glucose fluctuation [Unknown]
